FAERS Safety Report 20610417 (Version 4)
Quarter: 2022Q2

REPORT INFORMATION
  Report Type: Report from Study
  Country: US (occurrence: US)
  Receive Date: 20220318
  Receipt Date: 20220422
  Transmission Date: 20220720
  Serious: No
  Sender: FDA-Public Use
  Company Number: US-NOVARTISTESTPH-NVSC2022US062204

PATIENT
  Sex: Female
  Weight: 16.553 kg

DRUGS (6)
  1. TREPROSTINIL [Suspect]
     Active Substance: TREPROSTINIL
     Indication: Pulmonary arterial hypertension
     Dosage: CONT (118 NG/KG/MIN)
     Route: 058
     Dates: start: 20211118, end: 20220323
  2. TREPROSTINIL [Suspect]
     Active Substance: TREPROSTINIL
     Dosage: UNK
     Route: 058
     Dates: start: 2021, end: 20220317
  3. LETAIRIS [Concomitant]
     Active Substance: AMBRISENTAN
     Indication: Product used for unknown indication
     Dosage: UNK
     Route: 065
  4. REMODULIN [Concomitant]
     Active Substance: TREPROSTINIL
     Indication: Pulmonary arterial hypertension
     Dosage: UNK
     Route: 058
     Dates: end: 2021
  5. REMODULIN [Concomitant]
     Active Substance: TREPROSTINIL
     Dosage: UNK
     Route: 058
  6. REVATIO [Concomitant]
     Active Substance: SILDENAFIL CITRATE
     Indication: Product used for unknown indication
     Dosage: UNK
     Route: 065

REACTIONS (7)
  - Oxygen consumption increased [Recovering/Resolving]
  - Drug hypersensitivity [Unknown]
  - Respiratory rate increased [Unknown]
  - Erythema [Unknown]
  - Dyspnoea [Recovering/Resolving]
  - Rash [Recovering/Resolving]
  - Fatigue [Unknown]
